FAERS Safety Report 8303889-9 (Version None)
Quarter: 2012Q2

REPORT INFORMATION
  Report Type: 
  Country: None (occurrence: None)
  Receive Date: 20120423
  Receipt Date: 20120418
  Transmission Date: 20120825
  Serious: Yes (Hospitalization)
  Sender: FDA-Public Use
  Company Number: PHHY2012FR033510

PATIENT
  Age: 78 Year
  Sex: Female

DRUGS (1)
  1. CLOZAPINE [Suspect]
     Indication: HALLUCINATION
     Dosage: 25 MG, QD
     Dates: start: 20120213, end: 20120213

REACTIONS (3)
  - DEPRESSED LEVEL OF CONSCIOUSNESS [None]
  - SLOW RESPONSE TO STIMULI [None]
  - HEMIPLEGIA [None]
